FAERS Safety Report 11369021 (Version 1)
Quarter: 2015Q3

REPORT INFORMATION
  Report Type: Report from Study
  Country: BR (occurrence: BR)
  Receive Date: 20150812
  Receipt Date: 20150812
  Transmission Date: 20151125
  Serious: Yes (Hospitalization)
  Sender: FDA-Public Use
  Company Number: PHHY2015BR080408

PATIENT
  Age: 24 Year
  Sex: Female
  Weight: 52 kg

DRUGS (5)
  1. EXJADE [Suspect]
     Active Substance: DEFERASIROX
     Indication: SICKLE CELL ANAEMIA
     Dosage: 3 DF (30 MG/KG), QD (IN THE MORNING)
     Route: 048
  2. ACIDO FOLICO//FOLIC ACID [Concomitant]
     Active Substance: FOLIC ACID
     Indication: NERVOUSNESS
     Dosage: 5 DRP, QD
     Route: 048
     Dates: start: 1992
  3. NEULEPTIL [Concomitant]
     Active Substance: PERICIAZINE
     Indication: SICKLE CELL ANAEMIA
     Dosage: 3 DF, QD
     Route: 048
  4. HIDROXIUREA [Concomitant]
     Active Substance: HYDROXYUREA
     Indication: SICKLE CELL ANAEMIA
     Dosage: 3 DF, QD
     Route: 048
  5. EXJADE [Suspect]
     Active Substance: DEFERASIROX
     Dosage: 3 DF (30 MG/KG), QHS (AT NIGHT)
     Route: 048

REACTIONS (7)
  - Pyrexia [Recovered/Resolved]
  - Abdominal pain upper [Recovering/Resolving]
  - Abdominal pain [Unknown]
  - Gingival bleeding [Recovered/Resolved]
  - Gingival bleeding [Unknown]
  - Abdominal pain [Recovered/Resolved]
  - Influenza [Not Recovered/Not Resolved]

NARRATIVE: CASE EVENT DATE: 201506
